FAERS Safety Report 16256758 (Version 1)
Quarter: 2019Q2

REPORT INFORMATION
  Report Type: Spontaneous
  Country: US (occurrence: US)
  Receive Date: 20190430
  Receipt Date: 20190430
  Transmission Date: 20190711
  Serious: No
  Sender: FDA-Public Use
  Company Number: US-BAYER-2019-084941

PATIENT
  Sex: Male

DRUGS (3)
  1. MIRALAX [Suspect]
     Active Substance: POLYETHYLENE GLYCOL 3350
     Indication: CONSTIPATION
     Dosage: 3 OR 4 TIMES
     Route: 048
     Dates: start: 20190423, end: 20190423
  2. OXYCODON [Suspect]
     Active Substance: OXYCODONE
     Dosage: UNK UNK, UNK
  3. MIRALAX [Suspect]
     Active Substance: POLYETHYLENE GLYCOL 3350
     Indication: CONSTIPATION
     Dosage: 2 DF, QD
     Route: 048
     Dates: start: 20190422, end: 20190422

REACTIONS (1)
  - Constipation [Unknown]
